FAERS Safety Report 18313120 (Version 6)
Quarter: 2021Q2

REPORT INFORMATION
  Report Type: Spontaneous
  Country: US (occurrence: US)
  Receive Date: 20200925
  Receipt Date: 20210604
  Transmission Date: 20210717
  Serious: Yes (Other)
  Sender: FDA-Public Use
  Company Number: US-PFIZER INC-2020368317

PATIENT
  Age: 70 Year
  Sex: Male

DRUGS (1)
  1. LYRICA [Suspect]
     Active Substance: PREGABALIN
     Dosage: 100 MG, 3X/DAY
     Route: 048

REACTIONS (6)
  - Deafness [Unknown]
  - Cataract [Unknown]
  - Tremor [Unknown]
  - Dysarthria [Unknown]
  - Confusional state [Unknown]
  - Memory impairment [Unknown]
